FAERS Safety Report 6402725-5 (Version None)
Quarter: 2009Q4

REPORT INFORMATION
  Report Type: 
  Country: None (occurrence: None)
  Receive Date: 20091013
  Receipt Date: 20091002
  Transmission Date: 20100525
  Serious: Yes (Hospitalization, Other)
  Sender: FDA-Public Use
  Company Number: PIR# 0910010

PATIENT
  Age: 92 Year
  Sex: Male
  Weight: 67 kg

DRUGS (1)
  1. GENTAMICIN [Suspect]

REACTIONS (8)
  - BLOOD PRESSURE INCREASED [None]
  - CHILLS [None]
  - HYPERTHERMIA [None]
  - HYPERVENTILATION [None]
  - METABOLIC ACIDOSIS [None]
  - MYALGIA [None]
  - NO THERAPEUTIC RESPONSE [None]
  - TACHYCARDIA [None]
